FAERS Safety Report 16841808 (Version 1)
Quarter: 2019Q3

REPORT INFORMATION
  Report Type: Report from Study
  Country: US (occurrence: US)
  Receive Date: 20190923
  Receipt Date: 20190923
  Transmission Date: 20191005
  Serious: Yes (Hospitalization)
  Sender: FDA-Public Use
  Company Number: US-ACTELION-A-NJ2019-194042

PATIENT
  Sex: Female
  Weight: 107.94 kg

DRUGS (2)
  1. OPSUMIT [Suspect]
     Active Substance: MACITENTAN
     Indication: PULMONARY ARTERIAL HYPERTENSION
     Dosage: 10 MG, QD
     Route: 048
  2. LASIX [Concomitant]
     Active Substance: FUROSEMIDE
     Dosage: UNK, BID

REACTIONS (7)
  - Dyspnoea [Not Recovered/Not Resolved]
  - Lung neoplasm malignant [Unknown]
  - Peripheral swelling [Not Recovered/Not Resolved]
  - Alpha-1 anti-trypsin [Unknown]
  - Oedema [Unknown]
  - Blood count abnormal [Unknown]
  - Lung infection [Unknown]
